FAERS Safety Report 4668382-3 (Version None)
Quarter: 2005Q2

REPORT INFORMATION
  Report Type: 
  Country: None (occurrence: None)
  Receive Date: 20050523
  Receipt Date: 20050201
  Transmission Date: 20051028
  Serious: Yes (Other)
  Sender: FDA-Public Use
  Company Number: PHNU2005DE00746

PATIENT
  Age: 63 Year
  Sex: Female

DRUGS (4)
  1. ZOMETA [Suspect]
     Indication: METASTASES TO BONE
     Dosage: 4 MG, QMO
     Route: 042
     Dates: start: 20020101, end: 20050101
  2. AREDIA [Suspect]
     Indication: METASTASES TO BONE
     Dates: start: 19980101, end: 20020101
  3. TAVOR [Concomitant]
     Indication: RESTLESSNESS
     Dosage: 2 MG, QD
     Route: 048
  4. IBUPROFEN [Concomitant]
     Indication: PAIN
     Dosage: 600 MG, TID
     Route: 065

REACTIONS (17)
  - BONE DISORDER [None]
  - DRY SOCKET [None]
  - IMPAIRED HEALING [None]
  - INFLAMMATION [None]
  - JAW DISORDER [None]
  - LOCAL ANAESTHESIA [None]
  - LOCALISED INFECTION [None]
  - ORAL SURGERY [None]
  - OSTEOMYELITIS [None]
  - OSTEONECROSIS [None]
  - PAIN IN JAW [None]
  - PERIODONTITIS [None]
  - POST PROCEDURAL COMPLICATION [None]
  - PURULENT DISCHARGE [None]
  - SCINTIGRAPHY [None]
  - SWELLING [None]
  - TOOTH EXTRACTION [None]
